FAERS Safety Report 6388077-8 (Version None)
Quarter: 2009Q4

REPORT INFORMATION
  Report Type: 
  Country: None (occurrence: None)
  Receive Date: 20091005
  Receipt Date: 20090930
  Transmission Date: 20100525
  Serious: No
  Sender: FDA-Public Use
  Company Number: US-BAYER-200928550NA

PATIENT
  Age: 39 Year
  Sex: Female
  Weight: 68 kg

DRUGS (2)
  1. MIRENA [Suspect]
     Indication: CONTRACEPTION
     Dosage: CONTINUOUS DELIVERY
     Route: 015
     Dates: start: 20080625
  2. VITAMIN TAB [Concomitant]
     Indication: POSTPARTUM STATE

REACTIONS (2)
  - DEVICE EXPULSION [None]
  - PREGNANCY WITH CONTRACEPTIVE DEVICE [None]
